FAERS Safety Report 5496127-6 (Version None)
Quarter: 2007Q4

REPORT INFORMATION
  Report Type: 
  Country: None (occurrence: None)
  Receive Date: 20071025
  Receipt Date: 20070129
  Transmission Date: 20080405
  Serious: No
  Sender: FDA-Public Use
  Company Number: A0637506A

PATIENT
  Age: 85 Year
  Sex: Male

DRUGS (1)
  1. ADVAIR DISKUS 100/50 [Suspect]

REACTIONS (2)
  - ACCIDENTAL OVERDOSE [None]
  - DRUG ADMINISTRATION ERROR [None]
